FAERS Safety Report 4469961-9 (Version None)
Quarter: 2004Q3

REPORT INFORMATION
  Report Type: 
  Country: None (occurrence: None)
  Receive Date: 20040920
  Receipt Date: 20040802
  Transmission Date: 20050211
  Serious: No
  Sender: FDA-Public Use
  Company Number: A-US2003-03349

PATIENT
  Age: 62 Year
  Sex: Female

DRUGS (6)
  1. TRACLEER [Suspect]
     Indication: PULMONARY HYPERTENSION
     Dosage: 125 MG, BID, ORAL
     Route: 048
     Dates: start: 20030101
  2. COUMADIN [Concomitant]
  3. LASIX [Concomitant]
  4. POTASSIUM (POTASSIUM) [Concomitant]
  5. NEXIUM [Concomitant]
  6. PENTOXIFYLLINE (PENTYOXIFYLLINE) [Concomitant]

REACTIONS (2)
  - HAEMOGLOBIN DECREASED [None]
  - OEDEMA [None]
